FAERS Safety Report 25732337 (Version 1)
Quarter: 2025Q3

REPORT INFORMATION
  Report Type: Spontaneous
  Country: US (occurrence: US)
  Receive Date: 20250827
  Receipt Date: 20250827
  Transmission Date: 20251020
  Serious: No
  Sender: ELI LILLY AND COMPANY
  Company Number: US-ELI_LILLY_AND_COMPANY-US202508020064

PATIENT
  Age: 36 Year
  Sex: Female

DRUGS (6)
  1. ZEPBOUND [Suspect]
     Active Substance: TIRZEPATIDE
     Indication: Polycystic ovarian syndrome
     Dosage: UNK UNK, WEEKLY (1/W)
     Route: 058
     Dates: start: 20250729
  2. DESVENLAFAXINE [Concomitant]
     Active Substance: DESVENLAFAXINE
     Indication: Depression
  3. LABETALOL [Concomitant]
     Active Substance: LABETALOL
     Indication: Hypertension
  4. NIFEDIPINE [Concomitant]
     Active Substance: NIFEDIPINE
     Indication: Hypertension
  5. JUNEL FE 1/20 [Concomitant]
     Active Substance: ETHINYL ESTRADIOL\NORETHINDRONE ACETATE
     Indication: Uterine leiomyoma
  6. IVABRADINE [Concomitant]
     Active Substance: IVABRADINE
     Indication: Inappropriate sinus tachycardia

REACTIONS (2)
  - Nightmare [Unknown]
  - Off label use [Unknown]
